FAERS Safety Report 9587497 (Version 2)
Quarter: 2013Q4

REPORT INFORMATION
  Report Type: Report from Study
  Country: US (occurrence: US)
  Receive Date: 20131003
  Receipt Date: 20131003
  Transmission Date: 20140711
  Serious: Yes (Disabling)
  Sender: FDA-Public Use
  Company Number: US-US-EMD SERONO, INC.-7139077

PATIENT
  Sex: Female

DRUGS (2)
  1. REBIF [Suspect]
     Indication: MULTIPLE SCLEROSIS
     Route: 058
     Dates: start: 20110309
  2. BACLOFEN [Concomitant]
     Indication: PRODUCT USED FOR UNKNOWN INDICATION

REACTIONS (7)
  - Gait disturbance [Not Recovered/Not Resolved]
  - Impaired gastric emptying [Unknown]
  - Hypertension [Unknown]
  - Blood creatine phosphokinase decreased [Unknown]
  - Scar [Unknown]
  - Asthenia [Not Recovered/Not Resolved]
  - Fatigue [Recovering/Resolving]
